FAERS Safety Report 19900059 (Version 2)
Quarter: 2022Q4

REPORT INFORMATION
  Report Type: Spontaneous
  Country: US (occurrence: US)
  Receive Date: 20210930
  Receipt Date: 20221018
  Transmission Date: 20230112
  Serious: No
  Sender: FDA-Public Use
  Company Number: US-CELLTRION INC.-2021US008733

PATIENT

DRUGS (3)
  1. INFLECTRA [Suspect]
     Active Substance: INFLIXIMAB-DYYB
     Indication: Pyoderma gangrenosum
     Dosage: 500MG (5 MG/KG), SUPPOSED TO BE GETTING EVERY 6 WEEKS
     Route: 042
     Dates: start: 20190520
  2. INFLECTRA [Suspect]
     Active Substance: INFLIXIMAB-DYYB
     Dosage: EVERY 2 WEEKS FOR 2 WEEKS, THEN EVERY 4 WEEKS FOR 1 WEEK AND THEN EVERY 8 WEEKS
  3. INFLECTRA [Suspect]
     Active Substance: INFLIXIMAB-DYYB
     Dosage: 5 MG/KG, EVERY 2 WEEKS X 2 THEN EVERY 4 WEEKS THEN EVERY 8 WEEKS
     Route: 065

REACTIONS (3)
  - Off label use [Unknown]
  - Treatment delayed [Unknown]
  - Product distribution issue [Unknown]

NARRATIVE: CASE EVENT DATE: 20220204
